FAERS Safety Report 7267640-6 (Version None)
Quarter: 2011Q1

REPORT INFORMATION
  Report Type: 
  Country: None (occurrence: None)
  Receive Date: 20110121
  Receipt Date: 20110107
  Transmission Date: 20110831
  Serious: Yes (Hospitalization)
  Sender: FDA-Public Use
  Company Number: 2011000169

PATIENT
  Age: 58 Year
  Sex: Female
  Weight: 100 kg

DRUGS (9)
  1. OXYCODONE HCL [Concomitant]
  2. OXYCODONE HCL AND ACETAMINOPHEN [Concomitant]
  3. ERLOTINIB (ERLOTINIB) (TABLET) (ERLOTINIB) [Suspect]
     Indication: NON-SMALL CELL LUNG CANCER
     Dosage: 150 MG, QD, ORAL
     Route: 048
     Dates: start: 20101103, end: 20101207
  4. HYDROCODONE BITARTRATE [Concomitant]
  5. NEXIUM [Concomitant]
  6. POTASSIUM CHLORIDE [Concomitant]
  7. ALBUTEROL [Concomitant]
  8. AMOXICILLIN AND CLAVULANATE POTASSIUM [Concomitant]
  9. PAXIL [Concomitant]

REACTIONS (8)
  - BACK PAIN [None]
  - ARTHRALGIA [None]
  - NEOPLASM MALIGNANT [None]
  - PAIN [None]
  - CHEST PAIN [None]
  - COUGH [None]
  - ABDOMINAL PAIN [None]
  - NON-SMALL CELL LUNG CANCER [None]
